FAERS Safety Report 6330237-6 (Version None)
Quarter: 2009Q3

REPORT INFORMATION
  Report Type: 
  Country: None (occurrence: None)
  Receive Date: 20090826
  Receipt Date: 20090826
  Transmission Date: 20100115
  Serious: Yes (Other)
  Sender: FDA-Public Use
  Company Number: None

PATIENT
  Age: 66 Year
  Sex: Male
  Weight: 85.2762 kg

DRUGS (1)
  1. LIPITOR [Suspect]
     Dosage: ONE TABLET DAILY AT BEDTIME

REACTIONS (1)
  - MUSCLE SPASMS [None]
